FAERS Safety Report 16351321 (Version 4)
Quarter: 2019Q2

REPORT INFORMATION
  Report Type: Spontaneous
  Country: GR (occurrence: GR)
  Receive Date: 20190524
  Receipt Date: 20190628
  Transmission Date: 20190711
  Serious: Yes (Other)
  Sender: FDA-Public Use
  Company Number: PHHY2019GR106948

PATIENT
  Sex: Female

DRUGS (1)
  1. GILENYA [Suspect]
     Active Substance: FINGOLIMOD HYDROCHLORIDE
     Indication: MULTIPLE SCLEROSIS
     Dosage: UNK
     Route: 065

REACTIONS (6)
  - Cerebral disorder [Unknown]
  - Brain oedema [Unknown]
  - Cryptococcosis [Unknown]
  - Central nervous system fungal infection [Unknown]
  - Systemic candida [Unknown]
  - Fungal test positive [Unknown]
